FAERS Safety Report 13556257 (Version 1)
Quarter: 2017Q2

REPORT INFORMATION
  Report Type: Spontaneous
  Country: US (occurrence: US)
  Receive Date: 20170517
  Receipt Date: 20170517
  Transmission Date: 20170830
  Serious: No
  Sender: FDA-Public Use
  Company Number: US-SA-2017SA003706

PATIENT
  Age: 21 Year
  Sex: Female

DRUGS (5)
  1. TOUJEO [Suspect]
     Active Substance: INSULIN GLARGINE
     Indication: TYPE 1 DIABETES MELLITUS
     Route: 065
  2. LANTUS [Concomitant]
     Active Substance: INSULIN GLARGINE
     Dosage: DOSE DEPENDS ON HER BLOOD SUGAR DOSE:60 UNIT(S)
  3. LEVEMIR [Concomitant]
     Active Substance: INSULIN DETEMIR
  4. LANTUS [Concomitant]
     Active Substance: INSULIN GLARGINE
  5. SOLOSTAR [Concomitant]
     Active Substance: DEVICE

REACTIONS (2)
  - Hypersensitivity [Unknown]
  - Urticaria [Unknown]
